FAERS Safety Report 23941773 (Version 1)
Quarter: 2024Q2

REPORT INFORMATION
  Report Type: Spontaneous
  Country: US (occurrence: None)
  Receive Date: 20240604
  Receipt Date: 20240604
  Transmission Date: 20240715
  Serious: Yes (Hospitalization, Other)
  Sender: FDA-Public Use
  Company Number: None

PATIENT
  Age: 43 Year
  Sex: Female
  Weight: 67.5 kg

DRUGS (9)
  1. TIZANIDINE [Suspect]
     Active Substance: TIZANIDINE
     Indication: Muscle spasms
     Dosage: OTHER QUANTITY : 1 TABLET(S);?FREQUENCY : EVERY 6 HOURS;?
     Route: 048
     Dates: start: 20200601, end: 20240531
  2. LOSARTAN [Concomitant]
     Active Substance: LOSARTAN
  3. CARVEDILOL [Concomitant]
     Active Substance: CARVEDILOL
  4. PROZAC [Concomitant]
     Active Substance: FLUOXETINE HYDROCHLORIDE
  5. TIZANIDINE [Concomitant]
     Active Substance: TIZANIDINE
  6. HYDROCODONE [Concomitant]
     Active Substance: HYDROCODONE
  7. BANDRYL [Concomitant]
  8. IBUPROFEN [Concomitant]
     Active Substance: IBUPROFEN
  9. ACETAMINOPHEN [Concomitant]
     Active Substance: ACETAMINOPHEN

REACTIONS (10)
  - Tachycardia [None]
  - Hypertension [None]
  - Temperature regulation disorder [None]
  - Nausea [None]
  - Vomiting [None]
  - Muscle spasticity [None]
  - Anxiety [None]
  - Insomnia [None]
  - Withdrawal syndrome [None]
  - Extra dose administered [None]

NARRATIVE: CASE EVENT DATE: 20240101
